FAERS Safety Report 5197434-7 (Version None)
Quarter: 2006Q4

REPORT INFORMATION
  Report Type: 
  Country: None (occurrence: None)
  Receive Date: 20061227
  Receipt Date: 20061211
  Transmission Date: 20070319
  Serious: Yes (Other)
  Sender: FDA-Public Use
  Company Number: 2006151643

PATIENT
  Sex: Male

DRUGS (6)
  1. ADRIBLASTIN RD (DOXORUBICIN HYDROCHLORIDE) [Suspect]
     Indication: NEOPLASM MALIGNANT
     Dosage: PLACENTAL
     Dates: start: 20060215, end: 20060421
  2. SOLU-MEDROL [Suspect]
     Indication: NEOPLASM MALIGNANT
     Dosage: PLACENTAL
     Dates: start: 20060215, end: 20060425
  3. IFOSFAMIDE [Suspect]
     Indication: NEOPLASM MALIGNANT
     Dosage: PLACENTAL
     Dates: start: 20060215, end: 20060425
  4. NEUPOGEN [Suspect]
     Indication: NEOPLASM MALIGNANT
     Dosage: PLACENTAL
     Dates: start: 20060222, end: 20060505
  5. ZOFRAN [Suspect]
     Indication: NEOPLASM MALIGNANT
     Dosage: PLACENTAL
     Dates: start: 20060215, end: 20060426
  6. MESNA [Suspect]
     Indication: NEOPLASM MALIGNANT
     Dosage: PLACENTAL
     Dates: start: 20060215, end: 20060426

REACTIONS (4)
  - CAESAREAN SECTION [None]
  - DRUG EXPOSURE DURING PREGNANCY [None]
  - FOETAL GROWTH RETARDATION [None]
  - PREMATURE BABY [None]
